FAERS Safety Report 8617536 (Version 5)
Quarter: 2012Q4

REPORT INFORMATION
  Report Type: Report from Study
  Country: DK (occurrence: DK)
  Receive Date: 20120615
  Receipt Date: 20121210
  Transmission Date: 20130627
  Serious: Yes (Hospitalization)
  Sender: FDA-Public Use
  Company Number: DK-ROCHE-1077960

PATIENT
  Sex: Male
  Weight: 77.3 kg

DRUGS (5)
  1. MABTHERA [Suspect]
     Indication: RHEUMATOID ARTHRITIS
     Route: 065
     Dates: start: 20110927
  2. REMICADE [Suspect]
     Indication: RHEUMATOID ARTHRITIS
     Route: 042
     Dates: start: 20100928, end: 20110922
  3. ENBREL [Suspect]
     Indication: RHEUMATOID ARTHRITIS
     Route: 065
     Dates: start: 20071120, end: 20100701
  4. METHOTREXATE [Concomitant]
     Indication: RHEUMATOID ARTHRITIS
     Dosage: Gives stadig
     Route: 048
     Dates: start: 20070828, end: 20120515
  5. PREDNISOLON [Concomitant]
     Indication: RHEUMATOID ARTHRITIS
     Dosage: Gives stadig
     Route: 065
     Dates: start: 20071009, end: 20120515

REACTIONS (6)
  - Weight decreased [Unknown]
  - Wound [Unknown]
  - Metastases to peritoneum [Unknown]
  - Gastric cancer [Unknown]
  - Vomiting [Unknown]
  - Pneumonia [Unknown]
